APPROVED DRUG PRODUCT: NARATRIPTAN
Active Ingredient: NARATRIPTAN HYDROCHLORIDE
Strength: EQ 2.5MG BASE
Dosage Form/Route: TABLET;ORAL
Application: A078751 | Product #002
Applicant: ANI PHARMACEUTICALS INC
Approved: Jul 7, 2010 | RLD: No | RS: No | Type: DISCN